FAERS Safety Report 10795455 (Version 1)
Quarter: 2015Q1

REPORT INFORMATION
  Report Type: Spontaneous
  Country: US (occurrence: US)
  Receive Date: 20150215
  Receipt Date: 20150215
  Transmission Date: 20150721
  Serious: Yes (Death, Other)
  Sender: FDA-Public Use
  Company Number: US-ACTAVIS-2015-01829

PATIENT
  Age: 9 Month
  Sex: Male

DRUGS (2)
  1. DIPHENHYDRAMINE (WATSON LABORATORIES) [Suspect]
     Active Substance: DIPHENHYDRAMINE
     Indication: DRUG DIVERSION
     Dosage: UNK
     Route: 065
  2. AMITRIPTYLINE [Suspect]
     Active Substance: AMITRIPTYLINE
     Indication: DRUG DIVERSION
     Dosage: UNK
     Route: 065

REACTIONS (3)
  - Drug level increased [Fatal]
  - Drug diversion [Fatal]
  - Brain oedema [Fatal]
